FAERS Safety Report 11669399 (Version 1)
Quarter: 2015Q4

REPORT INFORMATION
  Report Type: Spontaneous
  Country: US (occurrence: US)
  Receive Date: 20151027
  Receipt Date: 20151027
  Transmission Date: 20160304
  Serious: No
  Sender: FDA-Public Use
  Company Number: US-ELI_LILLY_AND_COMPANY-US201004000294

PATIENT
  Age: 73 Year
  Sex: Female

DRUGS (1)
  1. FORTEO [Suspect]
     Active Substance: TERIPARATIDE
     Indication: OSTEOPOROSIS
     Dosage: 20 UG, DAILY (1/D)
     Dates: start: 20100309, end: 20100322

REACTIONS (16)
  - Malaise [Unknown]
  - Eye pain [Unknown]
  - Eating disorder [Unknown]
  - Asthenia [Unknown]
  - Nausea [Unknown]
  - Erythema [Unknown]
  - Lethargy [Unknown]
  - Rash [Unknown]
  - Bed rest [Recovered/Resolved]
  - Abdominal discomfort [Unknown]
  - Affective disorder [Unknown]
  - Depression [Unknown]
  - Dizziness [Unknown]
  - Visual impairment [Unknown]
  - Crying [Unknown]
  - Headache [Unknown]

NARRATIVE: CASE EVENT DATE: 201003
